FAERS Safety Report 6925952-7 (Version None)
Quarter: 2010Q3

REPORT INFORMATION
  Report Type: 
  Country: None (occurrence: None)
  Receive Date: 20100816
  Receipt Date: 20100804
  Transmission Date: 20110219
  Serious: Yes (Other)
  Sender: FDA-Public Use
  Company Number: US-PFIZER INC-2010098786

PATIENT
  Sex: Female
  Weight: 71.655 kg

DRUGS (13)
  1. LYRICA [Suspect]
     Indication: NEUROPATHY PERIPHERAL
     Dosage: UNK
     Route: 048
     Dates: start: 20100722, end: 20100730
  2. FUROSEMIDE [Suspect]
     Indication: OEDEMA PERIPHERAL
     Dosage: 40 MG, UNK
  3. FUROSEMIDE [Suspect]
     Indication: PAIN IN EXTREMITY
  4. FUROSEMIDE [Suspect]
     Indication: MUSCULOSKELETAL STIFFNESS
  5. FUROSEMIDE [Suspect]
     Indication: DISCOMFORT
  6. POTASSIUM [Suspect]
     Indication: OEDEMA PERIPHERAL
     Dosage: UNK
  7. POTASSIUM [Suspect]
     Indication: PAIN IN EXTREMITY
  8. POTASSIUM [Suspect]
     Indication: MUSCULOSKELETAL STIFFNESS
  9. POTASSIUM [Suspect]
     Indication: DISCOMFORT
  10. RAMIPRIL [Concomitant]
     Dosage: UNK
  11. COREG [Concomitant]
     Dosage: UNK
  12. ACETYLSALICYLIC ACID [Concomitant]
     Dosage: UNK
  13. COUMADIN [Concomitant]
     Indication: PERIPHERAL VASCULAR DISORDER
     Dosage: UNK

REACTIONS (8)
  - DISCOMFORT [None]
  - DIZZINESS [None]
  - MUSCULOSKELETAL STIFFNESS [None]
  - OEDEMA PERIPHERAL [None]
  - PAIN IN EXTREMITY [None]
  - PRURITUS [None]
  - VISION BLURRED [None]
  - WEIGHT INCREASED [None]
